FAERS Safety Report 5147826-7 (Version None)
Quarter: 2006Q4

REPORT INFORMATION
  Report Type: 
  Country: None (occurrence: None)
  Receive Date: 20061110
  Receipt Date: 20061106
  Transmission Date: 20070319
  Serious: Yes (Death)
  Sender: FDA-Public Use
  Company Number: FR-AVENTIS-200613890FR

PATIENT
  Age: 80 Year
  Sex: Female

DRUGS (13)
  1. RIFADIN [Suspect]
     Indication: LUNG INFECTION
     Route: 042
     Dates: start: 20050509, end: 20050517
  2. RIFADIN [Suspect]
     Indication: STAPHYLOCOCCAL INFECTION
     Route: 042
     Dates: start: 20050509, end: 20050517
  3. TARGOCID [Suspect]
     Indication: LUNG INFECTION
     Route: 042
     Dates: start: 20050503, end: 20050517
  4. TARGOCID [Suspect]
     Indication: STAPHYLOCOCCAL INFECTION
     Route: 042
     Dates: start: 20050503, end: 20050517
  5. ERYTHROMYCIN [Suspect]
     Route: 042
     Dates: start: 20050510, end: 20050517
  6. BENZODIAZEPINE DERIVATIVES [Concomitant]
  7. LASILIX                            /00032601/ [Concomitant]
     Indication: ACUTE PULMONARY OEDEMA
     Route: 042
  8. ROCEPHINE                          /00672201/ [Concomitant]
  9. OFLOCET                            /00731801/ [Concomitant]
  10. ISOSORBIDE DINITRATE [Concomitant]
  11. DOPAMINE HCL IN 5% DEXTROSE [Concomitant]
  12. DOBUTREX [Concomitant]
  13. MORPHINE [Concomitant]

REACTIONS (6)
  - GENERAL PHYSICAL HEALTH DETERIORATION [None]
  - LUNG DISORDER [None]
  - PATHOGEN RESISTANCE [None]
  - REFUSAL OF TREATMENT BY PATIENT [None]
  - RENAL FAILURE [None]
  - RESPIRATORY FAILURE [None]
